FAERS Safety Report 26115472 (Version 1)
Quarter: 2025Q4

REPORT INFORMATION
  Report Type: Spontaneous
  Country: US (occurrence: US)
  Receive Date: 20251203
  Receipt Date: 20251203
  Transmission Date: 20260117
  Serious: No
  Sender: TEVA
  Company Number: US-TEVA-VS-3395026

PATIENT
  Age: 59 Year
  Sex: Female

DRUGS (2)
  1. ALBUTEROL SULFATE [Suspect]
     Active Substance: ALBUTEROL SULFATE
     Indication: Product used for unknown indication
     Route: 065
  2. ALBUTEROL SULFATE [Suspect]
     Active Substance: ALBUTEROL SULFATE

REACTIONS (5)
  - Throat irritation [Unknown]
  - Product odour abnormal [Unknown]
  - Device colour issue [Unknown]
  - Respiratory tract irritation [Unknown]
  - Wrong technique in product usage process [Unknown]
